FAERS Safety Report 4936748-X (Version None)
Quarter: 2006Q1

REPORT INFORMATION
  Report Type: 
  Country: None (occurrence: None)
  Receive Date: 20060302
  Receipt Date: 20060220
  Transmission Date: 20060701
  Serious: Yes (Hospitalization, Other)
  Sender: FDA-Public Use
  Company Number: 2006006708

PATIENT
  Age: 23 Year
  Sex: Female
  Weight: 70 kg

DRUGS (2)
  1. DEPO-PROVERA [Suspect]
     Indication: CONTRACEPTION
     Dosage: SEE IMAGE
     Dates: start: 20020110, end: 20020110
  2. DEPO-PROVERA [Suspect]
     Indication: CONTRACEPTION
     Dosage: SEE IMAGE
     Dates: start: 20040401, end: 20040401

REACTIONS (6)
  - AMENORRHOEA [None]
  - BILIARY TRACT DISORDER [None]
  - CHOLELITHIASIS [None]
  - IATROGENIC INJURY [None]
  - PROCEDURAL COMPLICATION [None]
  - WEIGHT INCREASED [None]
